FAERS Safety Report 9413013 (Version 1)
Quarter: 2013Q3

REPORT INFORMATION
  Report Type: Spontaneous
  Country: US (occurrence: US)
  Receive Date: 20130722
  Receipt Date: 20130722
  Transmission Date: 20140515
  Serious: Yes (Life-Threatening)
  Sender: FDA-Public Use
  Company Number: US-GLAXOSMITHKLINE-A1033575A

PATIENT
  Age: 91 Year
  Sex: Male

DRUGS (4)
  1. AVODART [Suspect]
     Indication: BENIGN PROSTATIC HYPERPLASIA
     Dosage: .5MCG PER DAY
     Route: 048
     Dates: start: 2005
  2. DIGOXIN [Concomitant]
  3. BETA BLOCKER [Concomitant]
  4. THYROID MEDICATION [Concomitant]

REACTIONS (3)
  - Fatigue [Not Recovered/Not Resolved]
  - Pain [Unknown]
  - Hypotension [Unknown]
